FAERS Safety Report 7632272-4 (Version None)
Quarter: 2011Q3

REPORT INFORMATION
  Report Type: 
  Country: None (occurrence: None)
  Receive Date: 20110725
  Receipt Date: 20100712
  Transmission Date: 20111222
  Serious: No
  Sender: FDA-Public Use
  Company Number: US-BRISTOL-MYERS SQUIBB COMPANY-15188543

PATIENT
  Age: 91 Year
  Sex: Male
  Weight: 86 kg

DRUGS (12)
  1. NORVASC [Concomitant]
  2. POTASSIUM CHLORIDE [Concomitant]
     Dosage: EXTEND TABS
  3. LASIX [Concomitant]
     Dosage: 1DF=40 MG DAILY WITH 60 MG EVERY 5TH DAY
  4. TOPROL-XL [Concomitant]
  5. COUMADIN [Suspect]
     Indication: ATRIAL FIBRILLATION
     Dosage: 1DF= 3 MG EVERY OTHER DAY AND 3.5 MG ON THE OPPOSITE DAY
  6. ZOCOR [Concomitant]
  7. METHYLPREDNISOLONE [Concomitant]
  8. DOXAZOSIN MESYLATE [Concomitant]
     Dosage: 1DF=2 DAILY
  9. TYLENOL-500 [Suspect]
  10. CALTRATE + D [Concomitant]
     Dosage: 1DF= 1 TAB
  11. ALTACE [Concomitant]
  12. CENTRUM SILVER [Concomitant]
     Dosage: 1DF= 1 TAB

REACTIONS (1)
  - INTERNATIONAL NORMALISED RATIO INCREASED [None]
